FAERS Safety Report 11969475 (Version 1)
Quarter: 2016Q1

REPORT INFORMATION
  Report Type: Spontaneous
  Country: DE (occurrence: None)
  Receive Date: 20160126
  Receipt Date: 20160126
  Transmission Date: 20160526
  Serious: Yes (Hospitalization)
  Sender: FDA-Public Use
  Company Number: None

PATIENT
  Sex: Female

DRUGS (11)
  1. HARVONI [Suspect]
     Active Substance: LEDIPASVIR\SOFOSBUVIR
     Indication: HEPATITIS C
     Dosage: 60/400MG QD ORAL
     Route: 048
     Dates: start: 20151023, end: 20160114
  2. PREZISTA [Concomitant]
     Active Substance: DARUNAVIR ETHANOLATE
  3. FORMATRIS [Concomitant]
  4. INTOLENCE [Concomitant]
  5. NORVIR [Concomitant]
     Active Substance: RITONAVIR
  6. LAMIVUDINE. [Concomitant]
     Active Substance: LAMIVUDINE
  7. BUDENOSID [Concomitant]
  8. PANTOZOL [Concomitant]
     Active Substance: PANTOPRAZOLE SODIUM
  9. RETROVIR [Concomitant]
     Active Substance: ZIDOVUDINE
  10. DEKRISTOL [Concomitant]
     Active Substance: CHOLECALCIFEROL
  11. SERTRALINE [Concomitant]
     Active Substance: SERTRALINE HYDROCHLORIDE

REACTIONS (2)
  - Diarrhoea [None]
  - Pyrexia [None]

NARRATIVE: CASE EVENT DATE: 20151202
